FAERS Safety Report 4516462-5 (Version None)
Quarter: 2004Q4

REPORT INFORMATION
  Report Type: 
  Country: None (occurrence: None)
  Receive Date: 20041012
  Receipt Date: 20040826
  Transmission Date: 20050328
  Serious: No
  Sender: FDA-Public Use
  Company Number: PHEH2004US09296

PATIENT
  Age: 53 Year
  Sex: Female

DRUGS (6)
  1. ELIDEL [Suspect]
     Indication: ECZEMA
     Dosage: BID, TOPICAL
     Route: 061
     Dates: start: 20030101
  2. PRILOSEC [Concomitant]
  3. XANAX [Concomitant]
  4. PREMARIN [Concomitant]
  5. BORIC ACID [Concomitant]
  6. OLUX (CLOBETASOL PROPIONATE) [Concomitant]

REACTIONS (4)
  - EYE IRRITATION [None]
  - FLUSHING [None]
  - NASAL DISCOMFORT [None]
  - STOMATITIS [None]
